FAERS Safety Report 5394569-0 (Version None)
Quarter: 2007Q3

REPORT INFORMATION
  Report Type: 
  Country: None (occurrence: None)
  Receive Date: 20070723
  Receipt Date: 20070713
  Transmission Date: 20080115
  Serious: Yes (Other)
  Sender: FDA-Public Use
  Company Number: RU-SHR-RU-2007-024259

PATIENT
  Age: 34 Year
  Sex: Female
  Weight: 65 kg

DRUGS (1)
  1. ULTRAVIST 300 [Suspect]
     Dosage: 40 ML, UNK
     Route: 040
     Dates: start: 20070627, end: 20070627

REACTIONS (8)
  - ANXIETY [None]
  - CONVULSIONS LOCAL [None]
  - ERYTHEMA [None]
  - FEELING HOT [None]
  - HEAD DISCOMFORT [None]
  - HYPERSENSITIVITY [None]
  - MUSCULAR WEAKNESS [None]
  - RASH [None]
